FAERS Safety Report 15570055 (Version 1)
Quarter: 2018Q4

REPORT INFORMATION
  Report Type: Spontaneous
  Country: JP (occurrence: JP)
  Receive Date: 20181031
  Receipt Date: 20181031
  Transmission Date: 20190205
  Serious: Yes (Other)
  Sender: FDA-Public Use
  Company Number: JP-009507513-1810JPN013403

PATIENT
  Age: 74 Year
  Sex: Female

DRUGS (9)
  1. GLACTIV [Suspect]
     Active Substance: SITAGLIPTIN
     Indication: TYPE 2 DIABETES MELLITUS
     Route: 048
  2. MIRABEGRON [Concomitant]
     Active Substance: MIRABEGRON
  3. REBAMIPIDE [Concomitant]
     Active Substance: REBAMIPIDE
  4. EZETIMIBE. [Concomitant]
     Active Substance: EZETIMIBE
  5. ESOMEPRAZOLE. [Concomitant]
     Active Substance: ESOMEPRAZOLE MAGNESIUM
  6. LEVOCETIRIZINE DIHYDROCHLORIDE. [Concomitant]
     Active Substance: LEVOCETIRIZINE DIHYDROCHLORIDE
  7. ZOLPIDEM TARTRATE. [Concomitant]
     Active Substance: ZOLPIDEM TARTRATE
  8. FLURBIPROFEN. [Concomitant]
     Active Substance: FLURBIPROFEN
  9. CANDESARTAN. [Concomitant]
     Active Substance: CANDESARTAN

REACTIONS (5)
  - Chronic gastritis [Unknown]
  - Immunoglobulins increased [Unknown]
  - Gastric mucosal lesion [Unknown]
  - Helicobacter infection [Unknown]
  - Hiatus hernia [Unknown]
